FAERS Safety Report 19282406 (Version 1)
Quarter: 2021Q2

REPORT INFORMATION
  Report Type: Spontaneous
  Country: JP (occurrence: JP)
  Receive Date: 20210520
  Receipt Date: 20210520
  Transmission Date: 20210717
  Serious: Yes (Hospitalization, Other)
  Sender: FDA-Public Use
  Company Number: JP-BAYER-2021-142709

PATIENT
  Age: 8 Decade
  Sex: Male

DRUGS (1)
  1. NUBEQA [Suspect]
     Active Substance: DAROLUTAMIDE
     Indication: PROSTATE CANCER
     Dosage: DAILY DOSE 1200 MG
     Route: 048

REACTIONS (2)
  - Road traffic accident [None]
  - Traumatic fracture [Recovering/Resolving]

NARRATIVE: CASE EVENT DATE: 20210416
